FAERS Safety Report 24529910 (Version 1)
Quarter: 2024Q4

REPORT INFORMATION
  Report Type: Spontaneous
  Country: US (occurrence: None)
  Receive Date: 20241021
  Receipt Date: 20241021
  Transmission Date: 20250115
  Serious: No
  Sender: Public
  Company Number: None

PATIENT
  Age: 67 Year
  Sex: Female
  Weight: 82.55 kg

DRUGS (1)
  1. ENBREL [Suspect]
     Active Substance: ETANERCEPT
     Indication: Rheumatoid arthritis
     Dosage: OTHER FREQUENCY : WKLYUSINGTHEAUTOTOUCHDEVICEASDIRECTED ;?
     Dates: start: 202403

REACTIONS (3)
  - Nasopharyngitis [None]
  - Influenza [None]
  - Therapy interrupted [None]
